FAERS Safety Report 5949197-2 (Version None)
Quarter: 2008Q4

REPORT INFORMATION
  Report Type: 
  Country: None (occurrence: None)
  Receive Date: 20081021
  Receipt Date: 20080307
  Transmission Date: 20090506
  Serious: Yes (Other)
  Sender: FDA-Public Use
  Company Number: US-WYE-H03035408

PATIENT
  Age: 63 Year
  Sex: Female

DRUGS (5)
  1. PREMARIN [Suspect]
     Indication: HORMONE REPLACEMENT THERAPY
     Dosage: ORAL
     Route: 048
     Dates: start: 19950101, end: 19970101
  2. PREMARIN [Suspect]
     Indication: MENOPAUSAL SYMPTOMS
     Dosage: ORAL
     Route: 048
     Dates: start: 19950101, end: 19970101
  3. PREMARIN [Suspect]
     Indication: VULVOVAGINAL PAIN
     Dosage: ORAL
     Route: 048
     Dates: start: 19950101, end: 19970101
  4. PREMARIN [Suspect]
     Indication: VULVOVAGINAL DRYNESS
     Dates: start: 20050301
  5. PROGESTERONE [Suspect]
     Dates: end: 19970101

REACTIONS (2)
  - CONDITION AGGRAVATED [None]
  - DEMENTIA [None]
